FAERS Safety Report 12743749 (Version 1)
Quarter: 2016Q3

REPORT INFORMATION
  Report Type: Spontaneous
  Country: CH (occurrence: CH)
  Receive Date: 20160914
  Receipt Date: 20160914
  Transmission Date: 20161109
  Serious: Yes (Hospitalization, Other)
  Sender: FDA-Public Use
  Company Number: CH-PFIZER INC-2016424116

PATIENT
  Age: 69 Year
  Sex: Female

DRUGS (9)
  1. EBIXA [Concomitant]
     Active Substance: MEMANTINE HYDROCHLORIDE
     Indication: DEMENTIA ALZHEIMER^S TYPE
     Dosage: 10 MG, 2X/DAY
     Route: 048
     Dates: start: 201405
  2. TRITTICO [Concomitant]
     Active Substance: TRAZODONE HYDROCHLORIDE
     Dosage: 50 MG, 1X/DAY
     Route: 048
     Dates: start: 20160816, end: 20160819
  3. SEROQUEL [Suspect]
     Active Substance: QUETIAPINE FUMARATE
     Indication: AGITATION
     Dosage: 62.5 MG, DAILY (12.5 MORNING, 25 MIDDAY, 25 EVENING)
     Route: 048
     Dates: start: 20160727, end: 20160819
  4. REMERON [Concomitant]
     Active Substance: MIRTAZAPINE
     Route: 048
     Dates: start: 20160808, end: 20160815
  5. LYRICA [Concomitant]
     Active Substance: PREGABALIN
     Dosage: 75 MG, 2X/DAY
     Route: 048
     Dates: start: 20160817, end: 20160819
  6. ORFIRIL [Concomitant]
     Active Substance: VALPROIC ACID
     Indication: SEIZURE
     Dosage: 1375 MG, DAILY (550 MORNING, 825 EVENING)
     Route: 048
     Dates: start: 20160809, end: 20160819
  7. TEMESTA [Suspect]
     Active Substance: LORAZEPAM
     Indication: AGITATION
     Dosage: UNK
     Route: 048
     Dates: start: 20160707, end: 20160718
  8. HALDOL [Suspect]
     Active Substance: HALOPERIDOL
     Indication: AGITATION
     Dosage: UNK
     Route: 048
     Dates: start: 201512, end: 20160706
  9. ZYPREXA [Suspect]
     Active Substance: OLANZAPINE
     Indication: AGITATION
     Dosage: UNK
     Route: 048
     Dates: start: 20160707, end: 20160718

REACTIONS (7)
  - Dysphagia [Recovered/Resolved]
  - Agitation [Not Recovered/Not Resolved]
  - Hallucinations, mixed [Recovered/Resolved]
  - Akathisia [Not Recovered/Not Resolved]
  - Condition aggravated [Recovered/Resolved]
  - Restlessness [Not Recovered/Not Resolved]
  - Muscle rigidity [Recovered/Resolved]

NARRATIVE: CASE EVENT DATE: 201606
